FAERS Safety Report 21531288 (Version 1)
Quarter: 2022Q4

REPORT INFORMATION
  Report Type: Spontaneous
  Country: US (occurrence: None)
  Receive Date: 20221028
  Receipt Date: 20221028
  Transmission Date: 20230113
  Serious: Yes (Hospitalization)
  Sender: FDA-Public Use
  Company Number: None

PATIENT
  Sex: Male

DRUGS (1)
  1. ABIRATERONE [Suspect]
     Active Substance: ABIRATERONE
     Dosage: FREQUENCY : DAILY;?
     Route: 048

REACTIONS (7)
  - Dyspnoea [None]
  - Cardiac disorder [None]
  - Dyspnoea [None]
  - Hypertension [None]
  - Cardiac failure congestive [None]
  - Wrong technique in product usage process [None]
  - Product dose omission issue [None]
